FAERS Safety Report 9620284 (Version 1)
Quarter: 2013Q4

REPORT INFORMATION
  Report Type: Spontaneous
  Country: US (occurrence: US)
  Receive Date: 20131014
  Receipt Date: 20131014
  Transmission Date: 20140711
  Serious: No
  Sender: FDA-Public Use
  Company Number: US-ALLERGAN-1304223US

PATIENT
  Age: 91 Year
  Sex: Female

DRUGS (2)
  1. ALPHAGAN P [Suspect]
     Indication: GLAUCOMA
     Dosage: 2 GTT, UNK
     Route: 047
     Dates: start: 201303
  2. ALPHAGAN P [Suspect]
     Dosage: 2 GTT, BID
     Route: 047

REACTIONS (2)
  - Visual acuity reduced [Unknown]
  - Vision blurred [Unknown]
